FAERS Safety Report 12926246 (Version 2)
Quarter: 2017Q1

REPORT INFORMATION
  Report Type: Spontaneous
  Country: JP (occurrence: JP)
  Receive Date: 20161109
  Receipt Date: 20170316
  Transmission Date: 20170428
  Serious: Yes (Life-Threatening, Hospitalization, Other)
  Sender: FDA-Public Use
  Company Number: JP-TAKEDA-2016MPI009611

PATIENT
  Age: 53 Year
  Sex: Male

DRUGS (4)
  1. ALKERAN [Suspect]
     Active Substance: MELPHALAN
     Indication: PLASMA CELL MYELOMA
     Dosage: 370 MG, UNK
     Route: 042
     Dates: start: 20150113, end: 20150113
  2. VELCADE [Suspect]
     Active Substance: BORTEZOMIB
     Indication: PLASMA CELL MYELOMA
     Dosage: 1.8 MG, UNK
     Route: 042
     Dates: start: 20150109, end: 20150119
  3. GRANISETRON                        /01178102/ [Concomitant]
     Active Substance: GRANISETRON
     Indication: ANTIEMETIC SUPPORTIVE CARE
     Dosage: 3 MG, QD
     Route: 042
     Dates: start: 20150113, end: 20150113
  4. DECADRON [Concomitant]
     Active Substance: DEXAMETHASONE
     Indication: PLASMA CELL MYELOMA
     Dosage: 3.3 MG, UNK
     Route: 042
     Dates: start: 20150109, end: 20150119

REACTIONS (5)
  - Drug interaction [Unknown]
  - Sepsis [Recovered/Resolved]
  - Neutropenic colitis [Recovered/Resolved with Sequelae]
  - Circulatory collapse [Recovered/Resolved]
  - Renal failure [Recovered/Resolved]

NARRATIVE: CASE EVENT DATE: 20150121
